FAERS Safety Report 15375012 (Version 1)
Quarter: 2018Q3

REPORT INFORMATION
  Report Type: Report from Study
  Country: US (occurrence: US)
  Receive Date: 20180912
  Receipt Date: 20180912
  Transmission Date: 20181010
  Serious: Yes (Other)
  Sender: FDA-Public Use
  Company Number: US-BAYER-2018-119279

PATIENT
  Age: 69 Year
  Sex: Male

DRUGS (2)
  1. STIVARGA [Suspect]
     Active Substance: REGORAFENIB
     Indication: COLON CANCER
  2. STIVARGA [Suspect]
     Active Substance: REGORAFENIB
     Indication: COLORECTAL CANCER
     Dosage: 160 MG, QD FOR 21 DAYS ON FOLLOWED BY 7 DAYS OFF
     Route: 048
     Dates: start: 20180615, end: 20180725

REACTIONS (10)
  - Dyspepsia [None]
  - Fatigue [Recovering/Resolving]
  - Decreased appetite [Recovering/Resolving]
  - Inability to afford medication [None]
  - Asthenia [None]
  - Dry mouth [None]
  - Hypoaesthesia [None]
  - Hypotension [None]
  - Pain in extremity [Recovering/Resolving]
  - Back pain [Recovered/Resolved]

NARRATIVE: CASE EVENT DATE: 2018
